FAERS Safety Report 8787847 (Version 1)
Quarter: 2012Q4

REPORT INFORMATION
  Report Type: 
  Country: SN (occurrence: SN)
  Receive Date: 20120914
  Receipt Date: 20120914
  Transmission Date: 20130627
  Serious: Yes (Other)
  Sender: FDA-Public Use
  Company Number: PHHY2007SN011685

PATIENT
  Sex: Female

DRUGS (1)
  1. GLIVEC [Suspect]
     Dates: start: 20051107

REACTIONS (1)
  - Proteinuria [Unknown]
